FAERS Safety Report 13197759 (Version 13)
Quarter: 2019Q2

REPORT INFORMATION
  Report Type: Spontaneous
  Country: US (occurrence: US)
  Receive Date: 20170208
  Receipt Date: 20190627
  Transmission Date: 20190711
  Serious: Yes (Hospitalization, Other)
  Sender: FDA-Public Use
  Company Number: US-PFIZER INC-2017056058

PATIENT
  Age: 4 Year
  Sex: Male

DRUGS (26)
  1. DILANTIN [Suspect]
     Active Substance: PHENYTOIN
     Dosage: 250 MG, UNK
     Route: 042
     Dates: start: 20110208
  2. TOPAMAX [Concomitant]
     Active Substance: TOPIRAMATE
     Dosage: UNK
  3. DUOCAL [Concomitant]
     Dosage: UNK, 3X/DAY
  4. EPIDIOLEX ODT [Concomitant]
     Dosage: 140 MG, 2X/DAY
     Route: 048
  5. DILANTIN [Suspect]
     Active Substance: PHENYTOIN
     Dosage: 25 MG, 2X/DAY
     Dates: start: 20110308, end: 20110308
  6. ONFI [Concomitant]
     Active Substance: CLOBAZAM
     Dosage: 10 MG, 1X/DAY
     Route: 048
  7. DILANTIN [Suspect]
     Active Substance: PHENYTOIN
     Indication: FEBRILE CONVULSION
     Dosage: 25 MG, 3X/DAY
     Dates: end: 20110307
  8. KEPPRA [Concomitant]
     Active Substance: LEVETIRACETAM
     Dosage: 3.4 ML, 2X/DAY
  9. CLORAZEPATE [Concomitant]
     Active Substance: CLORAZEPATE DIPOTASSIUM
     Indication: SEIZURE CLUSTER
     Dosage: 1.8 MG, AS NEEDED (PRN)
  10. ONFI [Concomitant]
     Active Substance: CLOBAZAM
     Dosage: UNK, 1X/DAY (5 MG IN THE MORNING, 10 MG IN THE EVENING)
     Route: 048
  11. LAMICTAL [Concomitant]
     Active Substance: LAMOTRIGINE
     Indication: SEIZURE CLUSTER
     Dosage: 100 MG, 2X/DAY
     Route: 048
  12. DIASTAT [Concomitant]
     Active Substance: DIAZEPAM
     Dosage: 10 MG, AS NEEDED (PRN) PER RECTUM
  13. DILANTIN [Suspect]
     Active Substance: PHENYTOIN
     Dosage: 25 MG, 1X/DAY
     Dates: start: 20110309, end: 20110309
  14. ONFI [Concomitant]
     Active Substance: CLOBAZAM
     Dosage: UNK
  15. POTASSIUM CITRATE-CITRIC ACID [Concomitant]
     Active Substance: CITRIC ACID MONOHYDRATE\POTASSIUM CITRATE
     Dosage: 3/4 PACKET, DAILY
     Route: 048
  16. DILANTIN [Suspect]
     Active Substance: PHENYTOIN
     Dosage: 20 MG/KG, UNK
     Route: 042
     Dates: start: 20110212
  17. KEPPRA [Concomitant]
     Active Substance: LEVETIRACETAM
     Indication: EPILEPSY
     Dosage: 3.5 ML, 2X/DAY
     Route: 048
  18. ONFI [Concomitant]
     Active Substance: CLOBAZAM
     Indication: EPILEPSY
     Dosage: 05 MG, 2X/DAY
     Route: 048
  19. ONFI [Concomitant]
     Active Substance: CLOBAZAM
     Indication: SEIZURE CLUSTER
     Dosage: 10 MG, 3X/DAY
     Route: 048
  20. ONFI [Concomitant]
     Active Substance: CLOBAZAM
     Dosage: 5 MG, DAILY
     Route: 048
  21. SYNTHROID [Concomitant]
     Active Substance: LEVOTHYROXINE SODIUM
     Dosage: 37.5 UG, 1X/DAY (Q AM)
  22. LEVOXYL [Concomitant]
     Active Substance: LEVOTHYROXINE SODIUM
     Dosage: 37.5 MG, DAILY
  23. KEPPRA [Concomitant]
     Active Substance: LEVETIRACETAM
     Indication: SEIZURE CLUSTER
     Dosage: 3.6 ML, 2X/DAY
     Route: 048
  24. DIASTAT [Concomitant]
     Active Substance: DIAZEPAM
     Indication: SEIZURE
     Dosage: 7.5 MG, AS NEEDED (PRN) PER RECTUM
  25. LEVOXYL [Concomitant]
     Active Substance: LEVOTHYROXINE SODIUM
     Dosage: 25 UG, DAILY
     Route: 048
  26. POTASSIUM CHLORIDE. [Concomitant]
     Active Substance: POTASSIUM CHLORIDE
     Dosage: 11.3 ML, 2X/DAY

REACTIONS (7)
  - Encephalitis viral [Unknown]
  - Cerebellar atrophy [Unknown]
  - Language disorder [Unknown]
  - Respiratory syncytial virus infection [Unknown]
  - Cerebellar ataxia [Unknown]
  - Cognitive disorder [Unknown]
  - Drug reaction with eosinophilia and systemic symptoms [Recovering/Resolving]

NARRATIVE: CASE EVENT DATE: 201102
